FAERS Safety Report 19066492 (Version 2)
Quarter: 2021Q4

REPORT INFORMATION
  Report Type: Spontaneous
  Country: GR (occurrence: GR)
  Receive Date: 20210328
  Receipt Date: 20211222
  Transmission Date: 20220303
  Serious: Yes (Life-Threatening, Other)
  Sender: FDA-Public Use
  Company Number: None

PATIENT
  Age: 28 Year
  Sex: Male

DRUGS (13)
  1. IRINOTECAN [Suspect]
     Active Substance: IRINOTECAN
     Indication: Glioblastoma multiforme
     Dosage: INITIALLY AT 30 MG/M^2 (WITH A PLAN OF DOSE ESCALATION UP TO 50 MG/M^2 IN?ABSENCE OF SIGNIFICANT
     Route: 042
     Dates: start: 201909, end: 2019
  2. TEMOZOLOMIDE [Suspect]
     Active Substance: TEMOZOLOMIDE
     Indication: Glioblastoma multiforme
     Dosage: 100 MILLIGRAM/SQ. METER, CYCLICAL
     Route: 048
     Dates: start: 201909, end: 2020
  3. BEVACIZUMAB [Suspect]
     Active Substance: BEVACIZUMAB
     Indication: Glioblastoma multiforme
     Dosage: 15 MG/KG ON DAY 1, CYCLICAL
     Dates: start: 201909, end: 2020
  4. VINCRISTINE [Suspect]
     Active Substance: VINCRISTINE
     Indication: Glioblastoma multiforme
     Dosage: 2 MG ON DAY 1, CYCLICAL
     Route: 042
     Dates: start: 201909, end: 2020
  5. DEXAMETHASONE [Suspect]
     Active Substance: DEXAMETHASONE
     Indication: Seizure
     Dosage: 6 MILLIGRAM, BID (SEP-2019)
     Route: 048
     Dates: start: 2019, end: 2020
  6. CEFIXIM [Concomitant]
     Active Substance: CEFIXIME
     Indication: Prophylaxis
     Dosage: 400 MG OD BETWEEN DAYS -2 AND +10 OF EACH COURSE
     Route: 048
     Dates: start: 201909
  7. DIMETHINDENE MALEATE [Concomitant]
     Active Substance: DIMETHINDENE MALEATE
     Dosage: 2 MILLIGRAM, CYCLICAL
     Route: 042
     Dates: start: 201909
  8. PALONOSETRON HYDROCHLORIDE [Concomitant]
     Active Substance: PALONOSETRON HYDROCHLORIDE
     Indication: Prophylaxis of nausea and vomiting
     Dosage: 0.25 MG (DAYS 1, 3, AND 5), CYCLICAL
     Route: 048
     Dates: start: 201909
  9. APREPITANT [Concomitant]
     Active Substance: APREPITANT
     Indication: Prophylaxis of nausea and vomiting
     Dosage: 125 MG O.D. ON DAY 1 FOLLOWED BY 80 MG O.D. ON DAYS 2-5, CYCLICAL
     Dates: start: 201909
  10. GLUCOS [Concomitant]
     Dosage: UNK
     Route: 042
     Dates: start: 201909
  11. LOPERAMIDE [Concomitant]
     Active Substance: LOPERAMIDE
     Indication: Prophylaxis against diarrhoea
     Dates: start: 201909
  12. SODIUM CHLORIDE [Concomitant]
     Active Substance: SODIUM CHLORIDE
     Dosage: 50 MILLILITER
     Route: 042
     Dates: start: 201909
  13. DEXTROSE [Concomitant]
     Active Substance: DEXTROSE
     Route: 042
     Dates: start: 201909

REACTIONS (2)
  - Drug-induced liver injury [Recovered/Resolved]
  - Off label use [Unknown]

NARRATIVE: CASE EVENT DATE: 20190101
